FAERS Safety Report 4294349-3 (Version None)
Quarter: 2004Q1

REPORT INFORMATION
  Report Type: 
  Country: None (occurrence: None)
  Receive Date: 20040211
  Receipt Date: 20040128
  Transmission Date: 20041129
  Serious: Yes (Congenital Anomaly)
  Sender: FDA-Public Use
  Company Number: US_0401100309

PATIENT
  Age: 1 Day
  Sex: Female
  Weight: 4 kg

DRUGS (6)
  1. ZYPREXA [Suspect]
     Dates: end: 20031016
  2. BUSPAR [Concomitant]
  3. ZOLOFT [Concomitant]
  4. WELLBUTRIN SR [Concomitant]
  5. MULTI-VITAMIN [Concomitant]
  6. FOLIC ACID [Concomitant]

REACTIONS (2)
  - DOUBLE URETER [None]
  - MATERNAL DRUGS AFFECTING FOETUS [None]
